FAERS Safety Report 13180166 (Version 1)
Quarter: 2017Q1

REPORT INFORMATION
  Report Type: Spontaneous
  Country: CH (occurrence: CH)
  Receive Date: 20170202
  Receipt Date: 20170202
  Transmission Date: 20170428
  Serious: Yes (Other)
  Sender: FDA-Public Use
  Company Number: CH-BAXALTA-2017BLT000611

PATIENT
  Sex: Male

DRUGS (2)
  1. IMMUNINE STIM PLUS (COAGULATION FACTOR IX HUMAN) [Suspect]
     Active Substance: COAGULATION FACTOR IX HUMAN
     Indication: HAEMORRHAGE
  2. IMMUNINE STIM PLUS (COAGULATION FACTOR IX HUMAN) [Suspect]
     Active Substance: COAGULATION FACTOR IX HUMAN
     Indication: FACTOR IX DEFICIENCY
     Route: 042

REACTIONS (4)
  - Quality of life decreased [Unknown]
  - Arthropathy [Unknown]
  - Chronic hepatitis C [Recovered/Resolved]
  - Liver injury [Unknown]

NARRATIVE: CASE EVENT DATE: 1996
